FAERS Safety Report 21438668 (Version 1)
Quarter: 2022Q4

REPORT INFORMATION
  Report Type: Spontaneous
  Country: GB (occurrence: GB)
  Receive Date: 20221011
  Receipt Date: 20221011
  Transmission Date: 20230113
  Serious: Yes (Other)
  Sender: FDA-Public Use
  Company Number: None

PATIENT
  Age: 77 Year
  Sex: Female
  Weight: 61 kg

DRUGS (14)
  1. IBUPROFEN [Suspect]
     Active Substance: IBUPROFEN
     Indication: Product used for unknown indication
     Dosage: UNK(GEL)
     Route: 065
     Dates: start: 20220830
  2. BUPRENORPHINE [Concomitant]
     Active Substance: BUPRENORPHINE
     Indication: Product used for unknown indication
     Dosage: 1 DOSAGE FORM, (TRANSDERMAL PATCH)
     Route: 065
     Dates: start: 20220525
  3. CETIRIZINE [Concomitant]
     Active Substance: CETIRIZINE HYDROCHLORIDE
     Indication: Product used for unknown indication
     Dosage: 1 DOSAGE FORM, QD (1 DAY)
     Route: 065
     Dates: start: 20220420
  4. DICLOFENAC DIETHYLAMINE [Concomitant]
     Active Substance: DICLOFENAC DIETHYLAMINE
     Indication: Product used for unknown indication
     Dosage: UNK, QD, (DOSE: 3) (1 DAY)
     Route: 065
     Dates: start: 20220830
  5. FENBID [Concomitant]
     Indication: Product used for unknown indication
     Dosage: UNK, QD, (DOSE:3) (1 DAY)
     Route: 065
     Dates: start: 20220825
  6. FUROSEMIDE [Concomitant]
     Active Substance: FUROSEMIDE
     Indication: Product used for unknown indication
     Dosage: 1 DOSAGE FORM, QD (EACH MORNING)
     Route: 065
     Dates: start: 20220420
  7. HYDROXOCOBALAMIN [Concomitant]
     Active Substance: HYDROXOCOBALAMIN
     Indication: Product used for unknown indication
     Dosage: UNK (INJECTION) (3 MONTHS)
     Route: 030
     Dates: start: 20220623
  8. LEVOTHYROXINE [Concomitant]
     Active Substance: LEVOTHYROXINE
     Indication: Product used for unknown indication
     Dosage: 1 DOSAGE FORM, QD  (EACH MORNING)
     Route: 065
     Dates: start: 20220420
  9. LOPERAMIDE [Concomitant]
     Active Substance: LOPERAMIDE
     Indication: Diarrhoea
     Dosage: UNK (TABLET, UNCOATED) TWO TABS INITIALLY FOLLOWED BY...
     Route: 048
     Dates: start: 20220830
  10. MONTELUKAST [Concomitant]
     Active Substance: MONTELUKAST SODIUM
     Indication: Product used for unknown indication
     Dosage: 1 DOSAGE FORM, HS (AT NIGHT)
     Route: 065
     Dates: start: 20220420
  11. ACETAMINOPHEN [Concomitant]
     Active Substance: ACETAMINOPHEN
     Indication: Product used for unknown indication
     Dosage: 2 DOSAGE FORM, (AS NECESSARY) (TABLET, UNCOATED)
     Route: 048
     Dates: start: 20220624
  12. SERTRALINE [Concomitant]
     Active Substance: SERTRALINE HYDROCHLORIDE
     Indication: Product used for unknown indication
     Dosage: 1 DOSAGE FORM, QD
     Route: 065
     Dates: start: 20220420
  13. SYMBICORT [Concomitant]
     Active Substance: BUDESONIDE\FORMOTEROL FUMARATE DIHYDRATE
     Indication: Product used for unknown indication
     Dosage: 4 DOSAGE FORM, QD (PUFFS)
     Route: 065
     Dates: start: 20220624
  14. VAGIFEM [Concomitant]
     Active Substance: ESTRADIOL
     Indication: Product used for unknown indication
     Dosage: 1 DOSAGE FORM, QD (ONE TO BE INSERTED INTO THE VAGINA DAILY FOR TW...)
     Route: 067
     Dates: start: 20220622, end: 20220803

REACTIONS (1)
  - Asthma [Unknown]

NARRATIVE: CASE EVENT DATE: 20220830
